FAERS Safety Report 23175909 (Version 2)
Quarter: 2023Q4

REPORT INFORMATION
  Report Type: Spontaneous
  Country: FR (occurrence: FR)
  Receive Date: 20231113
  Receipt Date: 20231208
  Transmission Date: 20240110
  Serious: Yes (Hospitalization)
  Sender: FDA-Public Use
  Company Number: None

PATIENT
  Sex: Female
  Weight: 52 kg

DRUGS (2)
  1. DABIGATRAN ETEXILATE [Suspect]
     Active Substance: DABIGATRAN ETEXILATE
     Indication: Thrombosis prophylaxis
     Dosage: IN THE EVENING
     Route: 048
     Dates: start: 20220309, end: 20220311
  2. SOTALEX 80 mg,  scored tablet [Concomitant]
     Indication: Product used for unknown indication

REACTIONS (2)
  - Extraskeletal ossification [Recovering/Resolving]
  - Haematoma muscle [Recovered/Resolved]

NARRATIVE: CASE EVENT DATE: 20220101
